FAERS Safety Report 13053919 (Version 3)
Quarter: 2016Q4

REPORT INFORMATION
  Report Type: Spontaneous
  Country: IT (occurrence: IT)
  Receive Date: 20161222
  Receipt Date: 20161228
  Transmission Date: 20170207
  Serious: Yes (Death, Other)
  Sender: FDA-Public Use
  Company Number: IT-TEVA-720968ACC

PATIENT
  Age: 55 Year
  Sex: Male

DRUGS (8)
  1. CYCLOSPORINE. [Suspect]
     Active Substance: CYCLOSPORINE
     Indication: PROPHYLAXIS AGAINST GRAFT VERSUS HOST DISEASE
     Dates: start: 20101101
  2. METHYLPREDNISOLONE. [Suspect]
     Active Substance: METHYLPREDNISOLONE
     Indication: PROPHYLAXIS AGAINST GRAFT VERSUS HOST DISEASE
     Dosage: 2 MG/KG DAILY;
  3. THIOTEPA. [Suspect]
     Active Substance: THIOTEPA
     Indication: BONE MARROW CONDITIONING REGIMEN
     Dosage: 5 MG/KG EVERY 12 HOURS FOR TWO DOSES
  4. METHOTREXATE. [Concomitant]
     Active Substance: METHOTREXATE
     Indication: PROPHYLAXIS AGAINST GRAFT VERSUS HOST DISEASE
  5. ANTI-THYMOCYTE GLOBULIN (RABBIT) NOS [Concomitant]
     Active Substance: LAPINE T-LYMPHOCYTE IMMUNE GLOBULIN
     Dosage: 2.5 MG/KG PER DAY ON DAY 3 AND DAY 2 BEFORE THE TRANSPLANT
     Route: 065
  6. FLUDARABINE [Suspect]
     Active Substance: FLUDARABINE PHOSPHATE
     Indication: BONE MARROW CONDITIONING REGIMEN
     Dosage: 30 MG/M2 DAILY; 30 MG/M2 PER DAY FOR 6 DAYS PRIOR TO THE TRANSPLANTATION
     Dates: start: 20101101
  7. MYCOPHENOLATE MOFETIL. [Suspect]
     Active Substance: MYCOPHENOLATE MOFETIL
     Indication: PROPHYLAXIS AGAINST GRAFT VERSUS HOST DISEASE
  8. IMMUNOGLOBULINA DI CONIGLIO ANTITIMOCITI UMANI [Concomitant]
     Indication: BONE MARROW CONDITIONING REGIMEN

REACTIONS (11)
  - Blindness cortical [Fatal]
  - Neurotoxicity [Fatal]
  - Hepatic failure [Fatal]
  - Blindness [Unknown]
  - Off label use [Fatal]
  - Acute graft versus host disease in intestine [Fatal]
  - Paraplegia [Unknown]
  - Acute graft versus host disease in skin [Fatal]
  - Toxic leukoencephalopathy [Fatal]
  - Loss of proprioception [Unknown]
  - Delirium [Unknown]

NARRATIVE: CASE EVENT DATE: 20101225
